FAERS Safety Report 9500477 (Version 1)
Quarter: 2013Q3

REPORT INFORMATION
  Report Type: Spontaneous
  Country: US (occurrence: US)
  Receive Date: 20130905
  Receipt Date: 20130905
  Transmission Date: 20140515
  Serious: Yes (Hospitalization)
  Sender: FDA-Public Use
  Company Number: US-BAYER-2013-106533

PATIENT
  Age: 27 Year
  Sex: Female
  Weight: 81.63 kg

DRUGS (6)
  1. YASMIN [Suspect]
  2. ETODOLAC [Concomitant]
     Dosage: 400 MG, BID
     Route: 048
  3. HYDROCODONE/ACETAMINOPHEN [Concomitant]
     Dosage: 7.5 MG/750 MG 1 Q ( EVERY) 4 TO 6 H ( HOURS) PRN (AS NEED)
     Route: 048
  4. CYMBALTA [Concomitant]
     Dosage: 60 MG, DAILY
     Route: 048
  5. OXYCODONE [Concomitant]
     Indication: PAIN
     Dosage: 1-2 TABS Q 4 H PRN
  6. VICODIN [Concomitant]

REACTIONS (1)
  - Deep vein thrombosis [None]
